FAERS Safety Report 17455561 (Version 3)
Quarter: 2020Q1

REPORT INFORMATION
  Report Type: Other
  Country: IT (occurrence: IT)
  Receive Date: 20200225
  Receipt Date: 20200311
  Transmission Date: 20200409
  Serious: Yes (Other)
  Sender: FDA-Public Use
  Company Number: IT-CELLTRION INC.-2020IT018474

PATIENT

DRUGS (8)
  1. CYCLOPHOSPHAMIDE. [Suspect]
     Active Substance: CYCLOPHOSPHAMIDE
     Indication: LYMPHOMA
     Dosage: 352 MILLIGRAM, 1 CYCLICAL (CUMULATIVE DOSE TO FIRST REACTION: 352MG)
     Route: 042
     Dates: start: 20191009
  2. METHOTREXATE. [Suspect]
     Active Substance: METHOTREXATE
     Indication: LYMPHOMA
     Dosage: 88 MILLIGRAM, 1 CYCLICAL (CUMULATIVE DOSE TO FIRST REACTION: 88MG)
     Route: 042
     Dates: start: 20190918
  3. RITUXIMAB (UNKNOWN) [Suspect]
     Active Substance: RITUXIMAB
     Indication: LYMPHOMA
     Dosage: 660 MILLIGRAM, 1 CYCLICAL (CUMMULATIVE DOSE TO FIRST REACTION: 660 MG)
     Route: 042
     Dates: start: 20190917
  4. ETOPOSIDE. [Suspect]
     Active Substance: ETOPOSIDE
     Indication: LYMPHOMA
     Dosage: 105 MILLIGRAM, 1 CYCLICAL  (CUMULATIVE DOSE TO FIRST REACTION: 105MG)
     Route: 042
     Dates: start: 20190921
  5. IFOSFAMIDE. [Suspect]
     Active Substance: IFOSFAMIDE
     Indication: LYMPHOMA
     Dosage: 700 MILLIGRAM, 1 CYCLICAL (CUMULATIVE DOSE TO FIRST REACTION: 700MG)
     Route: 042
     Dates: start: 20190918
  6. VINCRISTINE SULFATE. [Suspect]
     Active Substance: VINCRISTINE SULFATE
     Indication: LYMPHOMA
     Dosage: 1 MILLIGRAM, 1 CYCLE (CUMULATIVE DOSE TO FIRST REACTION: 1MG)
     Route: 042
     Dates: start: 20191009
  7. DOXORUBICIN HYDROCHLORIDE. [Suspect]
     Active Substance: DOXORUBICIN HYDROCHLORIDE
     Indication: NON-HODGKIN^S LYMPHOMA
     Dosage: 44 MILLIGRAM, 1 CYCLICAL (CUMULATIVE DOSE TO FIRST REACTION: 44MG)
     Route: 042
     Dates: start: 20190918
  8. CYTARABINE. [Suspect]
     Active Substance: CYTARABINE
     Indication: LYMPHOMA
     Dosage: 210 MILLIGRAM, 1 CYCLICAL  (CUMULATIVE DOSE TO FIRST REACTION: 210MG)
     Route: 042
     Dates: start: 20190921

REACTIONS (5)
  - Malaise [Recovering/Resolving]
  - Asthenia [Recovering/Resolving]
  - Nausea [Recovering/Resolving]
  - Loss of consciousness [Recovering/Resolving]
  - Dizziness [Recovering/Resolving]

NARRATIVE: CASE EVENT DATE: 20191014
